FAERS Safety Report 10482096 (Version 1)
Quarter: 2014Q3

REPORT INFORMATION
  Report Type: Spontaneous
  Country: US (occurrence: US)
  Receive Date: 20140929
  Receipt Date: 20140929
  Transmission Date: 20150326
  Serious: No
  Sender: FDA-Public Use
  Company Number: US-BAUSCH-SYM-2014-20964

PATIENT
  Age: 14 Year
  Sex: Male

DRUGS (1)
  1. DIAZEPAM. [Suspect]
     Active Substance: DIAZEPAM
     Indication: CONVULSION

REACTIONS (3)
  - Drug dispensing error [Unknown]
  - Product quality issue [Unknown]
  - No adverse event [Unknown]
